FAERS Safety Report 6449986-4 (Version None)
Quarter: 2009Q4

REPORT INFORMATION
  Report Type: 
  Country: None (occurrence: None)
  Receive Date: 20091120
  Receipt Date: 20091120
  Transmission Date: 20100525
  Serious: Yes (Other)
  Sender: FDA-Public Use
  Company Number: None

PATIENT
  Age: 53 Year
  Sex: Male

DRUGS (5)
  1. ENBREL [Suspect]
     Indication: RHEUMATOID ARTHRITIS
     Dosage: 50 MG WEEKLY SQ
     Route: 058
  2. FISH OIL [Concomitant]
  3. VITAMIN AND MINERAL SUPPLEMENTS [Concomitant]
  4. METHOTREXATE [Concomitant]
  5. VELEBREX [Concomitant]

REACTIONS (2)
  - ERYTHEMA MULTIFORME [None]
  - OROPHARYNGEAL PAIN [None]
